FAERS Safety Report 16720696 (Version 2)
Quarter: 2019Q3

REPORT INFORMATION
  Report Type: Spontaneous
  Country: JP (occurrence: JP)
  Receive Date: 20190820
  Receipt Date: 20190923
  Transmission Date: 20191005
  Serious: Yes (Hospitalization)
  Sender: FDA-Public Use
  Company Number: JP-BAXTER-2019BAX016018

PATIENT
  Age: 57 Year
  Sex: Female

DRUGS (17)
  1. ELIQUIS [Concomitant]
     Active Substance: APIXABAN
     Indication: PRODUCT USED FOR UNKNOWN INDICATION
     Route: 065
  2. MAGMITT [Concomitant]
     Active Substance: MAGNESIUM OXIDE
     Indication: PRODUCT USED FOR UNKNOWN INDICATION
     Route: 065
  3. HOLOXAN [Suspect]
     Active Substance: IFOSFAMIDE
     Dosage: 2ND COURSE OF AI THERAPY
     Route: 041
     Dates: start: 20190311, end: 20190315
  4. EMEND [Suspect]
     Active Substance: APREPITANT
     Route: 065
     Dates: start: 20190311, end: 20190313
  5. HOLOXAN [Suspect]
     Active Substance: IFOSFAMIDE
     Indication: SARCOMA UTERUS
     Dosage: 1ST COURSE OF AI THERAPY
     Route: 041
     Dates: start: 20190228, end: 20190304
  6. HOLOXAN [Suspect]
     Active Substance: IFOSFAMIDE
     Dosage: 3RD COURSE OF AI THERAPY
     Route: 041
     Dates: start: 20190401, end: 20190405
  7. UROMITEXAN 400 MG [Suspect]
     Active Substance: MESNA
     Indication: PRODUCT USED FOR UNKNOWN INDICATION
     Route: 065
     Dates: start: 20190228, end: 20190304
  8. UROMITEXAN 400 MG [Suspect]
     Active Substance: MESNA
     Route: 065
     Dates: start: 20190401, end: 20190405
  9. DOXORUBICIN HYDROCHLORIDE. [Suspect]
     Active Substance: DOXORUBICIN HYDROCHLORIDE
     Indication: SARCOMA UTERUS
     Dosage: 1ST COURSE OF AI THERAPY
     Route: 065
     Dates: start: 20190228, end: 20190301
  10. DOXORUBICIN HYDROCHLORIDE. [Suspect]
     Active Substance: DOXORUBICIN HYDROCHLORIDE
     Dosage: 2ND COURSE OF AI THERAPY
     Route: 065
     Dates: start: 20190311, end: 20190312
  11. DOXORUBICIN HYDROCHLORIDE. [Suspect]
     Active Substance: DOXORUBICIN HYDROCHLORIDE
     Dosage: 4TH AND 5TH COURSES OF AI THERAPY
     Route: 065
  12. CALONAL [Concomitant]
     Active Substance: ACETAMINOPHEN
     Indication: PYREXIA
     Route: 065
  13. UROMITEXAN 400 MG [Suspect]
     Active Substance: MESNA
     Route: 065
     Dates: start: 20190311, end: 20190315
  14. EMEND [Suspect]
     Active Substance: APREPITANT
     Indication: PRODUCT USED FOR UNKNOWN INDICATION
     Route: 065
     Dates: start: 20190228, end: 20190302
  15. DOXORUBICIN HYDROCHLORIDE. [Suspect]
     Active Substance: DOXORUBICIN HYDROCHLORIDE
     Dosage: 3RD COURSE OF AI THERAPY
     Route: 065
     Dates: start: 20190401, end: 20190402
  16. EMEND [Suspect]
     Active Substance: APREPITANT
     Route: 065
     Dates: start: 20190401, end: 20190403
  17. SENNOSIDE [Concomitant]
     Active Substance: SENNOSIDES
     Indication: CONSTIPATION
     Route: 065

REACTIONS (2)
  - Encephalopathy [Recovered/Resolved]
  - Incontinence [Unknown]

NARRATIVE: CASE EVENT DATE: 20190317
